FAERS Safety Report 9771728 (Version 2)
Quarter: 2014Q1

REPORT INFORMATION
  Report Type: Spontaneous
  Country: MX (occurrence: MX)
  Receive Date: 20131219
  Receipt Date: 20140113
  Transmission Date: 20141002
  Serious: Yes (Hospitalization)
  Sender: FDA-Public Use
  Company Number: MX-AMGEN-MEXSP2013088816

PATIENT
  Age: 48 Year
  Sex: 0

DRUGS (5)
  1. FILGRASTIM [Suspect]
     Indication: COLORECTAL CANCER
     Dosage: 3 MUG, UNK
     Route: 065
  2. FLUOROURACIL [Concomitant]
     Dosage: UNK
  3. FOLINIC ACID [Concomitant]
     Dosage: UNK
  4. OXALIPLATIN [Concomitant]
     Dosage: UNK
  5. CETUXIMAB [Concomitant]
     Dosage: UNK

REACTIONS (2)
  - Febrile neutropenia [Unknown]
  - Disease progression [Unknown]
